FAERS Safety Report 6634147-6 (Version None)
Quarter: 2010Q1

REPORT INFORMATION
  Report Type: 
  Country: None (occurrence: None)
  Receive Date: 20100310
  Receipt Date: 20100225
  Transmission Date: 20100710
  Serious: Yes (Hospitalization, Other)
  Sender: FDA-Public Use
  Company Number: FABR-1000882

PATIENT
  Age: 61 Year
  Sex: Male
  Weight: 55 kg

DRUGS (5)
  1. FABRAZYME [Suspect]
     Indication: FABRY'S DISEASE
     Dosage: 70 MG, Q2W, INTRAVENOUS; 0.3 MG/KG, INTRAVENOUS
     Route: 042
     Dates: start: 20010101, end: 20090601
  2. FABRAZYME [Suspect]
     Indication: FABRY'S DISEASE
     Dosage: 70 MG, Q2W, INTRAVENOUS; 0.3 MG/KG, INTRAVENOUS
     Route: 042
     Dates: start: 20090101
  3. METOPROLOL (METOPROLOL) [Concomitant]
  4. ANTIHYPERTENSIVES [Concomitant]
  5. ANTITHROMBOTIC AGENTS [Concomitant]

REACTIONS (7)
  - ASPHYXIA [None]
  - CARDIAC DISORDER [None]
  - CARDIOVASCULAR DISORDER [None]
  - GENERAL PHYSICAL HEALTH DETERIORATION [None]
  - HEADACHE [None]
  - NUTRITIONAL CONDITION ABNORMAL [None]
  - WEIGHT DECREASED [None]
